FAERS Safety Report 5635786-1 (Version None)
Quarter: 2008Q1

REPORT INFORMATION
  Report Type: 
  Country: None (occurrence: None)
  Receive Date: 20080223
  Receipt Date: 20080214
  Transmission Date: 20080703
  Serious: Yes (Other)
  Sender: FDA-Public Use
  Company Number: BR-ELI_LILLY_AND_COMPANY-BR200802003396

PATIENT
  Sex: Female
  Weight: 59 kg

DRUGS (6)
  1. HUMALOG [Suspect]
     Indication: DIABETES MELLITUS
     Dosage: 38 IU, EACH MORNING
     Route: 058
     Dates: start: 20050101
  2. HUMALOG [Suspect]
     Dosage: 20 IU, EACH EVENING
     Route: 058
     Dates: start: 20050101
  3. HUMALOG [Suspect]
     Dosage: 12 IU, UNKNOWN
     Route: 058
     Dates: start: 20080204, end: 20080204
  4. LANTUS [Concomitant]
     Indication: DIABETES MELLITUS
     Dosage: UNK, UNKNOWN
     Route: 065
  5. ENALAPRIL MALEATE [Concomitant]
     Indication: HYPERTENSION
     Dosage: UNK, UNKNOWN
     Route: 065
  6. LASILACTONE [Concomitant]
     Indication: DIURETIC THERAPY
     Dosage: UNK, UNKNOWN
     Route: 065

REACTIONS (2)
  - HYPERGLYCAEMIA [None]
  - RETINAL HAEMORRHAGE [None]
